FAERS Safety Report 24205551 (Version 2)
Quarter: 2024Q4

REPORT INFORMATION
  Report Type: Other
  Country: US (occurrence: US)
  Receive Date: 20240813
  Receipt Date: 20241219
  Transmission Date: 20250115
  Serious: No
  Sender: TRAVERE THERAPEUTICS
  Company Number: US-TRAVERE-2024TVT00723

PATIENT
  Age: 64 Year
  Sex: Female

DRUGS (2)
  1. FILSPARI [Suspect]
     Active Substance: SPARSENTAN
     Indication: IgA nephropathy
     Route: 048
  2. FILSPARI [Suspect]
     Active Substance: SPARSENTAN
     Route: 048

REACTIONS (4)
  - Fatigue [Recovering/Resolving]
  - Myalgia [Recovering/Resolving]
  - Anaemia [Unknown]
  - Diarrhoea [Unknown]
